FAERS Safety Report 25582114 (Version 1)
Quarter: 2025Q3

REPORT INFORMATION
  Report Type: Spontaneous
  Country: AU (occurrence: AU)
  Receive Date: 20250719
  Receipt Date: 20250719
  Transmission Date: 20251020
  Serious: Yes (Hospitalization, Other)
  Sender: RANBAXY
  Company Number: AU-SUN PHARMACEUTICAL INDUSTRIES LTD-2025R1-518069

PATIENT
  Age: 75 Year
  Sex: Male

DRUGS (6)
  1. DOXORUBICIN [Suspect]
     Active Substance: DOXORUBICIN
     Indication: Diffuse large B-cell lymphoma
     Route: 042
     Dates: start: 20241220
  2. VINCRISTINE [Suspect]
     Active Substance: VINCRISTINE
     Indication: Diffuse large B-cell lymphoma
     Route: 042
     Dates: start: 20241220
  3. CYCLOPHOSPHAMIDE [Suspect]
     Active Substance: CYCLOPHOSPHAMIDE
     Indication: Diffuse large B-cell lymphoma
     Route: 042
  4. PREDNISONE [Suspect]
     Active Substance: PREDNISONE
     Indication: Diffuse large B-cell lymphoma
     Dosage: 100 MILLIGRAM, DAILY
     Route: 048
     Dates: start: 20241220
  5. ODRONEXTAMAB [Suspect]
     Active Substance: ODRONEXTAMAB
     Indication: Diffuse large B-cell lymphoma
     Dosage: 0.2 MILLIGRAM, WEEKLY
     Route: 042
     Dates: start: 20241227
  6. ODRONEXTAMAB [Suspect]
     Active Substance: ODRONEXTAMAB
     Dosage: 0.5 MILLIGRAM, WEEKLY
     Route: 042
     Dates: start: 20241228

REACTIONS (1)
  - Febrile neutropenia [Recovered/Resolved]
